FAERS Safety Report 8427223-9 (Version None)
Quarter: 2012Q2

REPORT INFORMATION
  Report Type: 
  Country: None (occurrence: None)
  Receive Date: 20120611
  Receipt Date: 20120531
  Transmission Date: 20120825
  Serious: Yes (Hospitalization)
  Sender: FDA-Public Use
  Company Number: US-GLAXOSMITHKLINE-A0875886A

PATIENT
  Age: 60 Year
  Sex: Female
  Weight: 66.8 kg

DRUGS (8)
  1. ELAVIL [Concomitant]
  2. CRESTOR [Concomitant]
  3. NEXIUM [Concomitant]
  4. AVANDIA [Suspect]
     Indication: DIABETES MELLITUS
     Dosage: 4MG TWICE PER DAY
     Route: 048
     Dates: start: 19990830
  5. AVANDAMET [Suspect]
     Indication: DIABETES MELLITUS
     Route: 048
     Dates: start: 20031230, end: 20050101
  6. AVALIDE [Concomitant]
  7. GLUCOPHAGE [Concomitant]
  8. PREMARIN [Concomitant]

REACTIONS (4)
  - ANGINA UNSTABLE [None]
  - MYOCARDIAL ISCHAEMIA [None]
  - CARDIAC DISORDER [None]
  - CORONARY ARTERY DISEASE [None]
